FAERS Safety Report 21723023 (Version 1)
Quarter: 2022Q4

REPORT INFORMATION
  Report Type: Report from Study
  Country: US (occurrence: US)
  Receive Date: 20221213
  Receipt Date: 20221213
  Transmission Date: 20230113
  Serious: Yes (Hospitalization, Other)
  Sender: FDA-Public Use
  Company Number: US-BAXTER-2022BAX026610

PATIENT
  Age: 17 Year
  Sex: Male
  Weight: 98.7 kg

DRUGS (28)
  1. DOXORUBICIN [Suspect]
     Active Substance: DOXORUBICIN
     Indication: Acute lymphocytic leukaemia
     Dosage: 54 MG, ONCE A WEEK
     Route: 042
     Dates: start: 20220504
  2. DOXORUBICIN [Suspect]
     Active Substance: DOXORUBICIN
     Dosage: LAST DOSE PRIOR TO THE SAE
     Route: 042
     Dates: start: 20220518, end: 20220518
  3. CYCLOPHOSPHAMIDE [Suspect]
     Active Substance: CYCLOPHOSPHAMIDE
     Indication: Acute lymphocytic leukaemia
     Dosage: 2140 MILLIGRAM, 30-60 MIN ONCE
     Route: 042
     Dates: start: 20211220
  4. CYCLOPHOSPHAMIDE [Suspect]
     Active Substance: CYCLOPHOSPHAMIDE
     Dosage: LAST DOSE PRIOR TO THE SAE
     Route: 042
     Dates: start: 20220613, end: 20220613
  5. CYTARABINE [Suspect]
     Active Substance: CYTARABINE
     Indication: Acute lymphocytic leukaemia
     Dosage: 160 MILLIGRAM, QD FOR 4 DAYS
     Route: 042
     Dates: start: 20211220
  6. CYTARABINE [Suspect]
     Active Substance: CYTARABINE
     Dosage: LAST DOSE PRIOR TO THE SAE
     Route: 042
     Dates: start: 20220623
  7. MERCAPTOPURINE [Suspect]
     Active Substance: MERCAPTOPURINE
     Indication: Acute lymphocytic leukaemia
     Dosage: 53.5 MG, QD
     Route: 048
     Dates: start: 20211220, end: 20221129
  8. MERCAPTOPURINE [Suspect]
     Active Substance: MERCAPTOPURINE
     Dosage: LAST DOSE PRIOR TO THE SAE
     Route: 048
     Dates: start: 20221128, end: 20221128
  9. VINCRISTINE [Suspect]
     Active Substance: VINCRISTINE
     Indication: Acute lymphocytic leukaemia
     Dosage: (FIRST DOSE) 2 MILLIGRAM, ONCE
     Route: 042
     Dates: start: 20220103
  10. VINCRISTINE [Suspect]
     Active Substance: VINCRISTINE
     Dosage: LAST DOSE PRIOR TO THE SAE
     Route: 042
     Dates: start: 20221102, end: 20221102
  11. METHOTREXATE [Suspect]
     Active Substance: METHOTREXATE
     Indication: Acute lymphocytic leukaemia
     Dosage: 15 MILLIGRAM, ONCE
     Route: 037
     Dates: start: 20211220, end: 20221130
  12. METHOTREXATE [Suspect]
     Active Substance: METHOTREXATE
     Dosage: LAST DOSE OF METHOTREXATE PRIOR TO THE SAE WAS TAKEN
     Route: 037
     Dates: start: 20221102
  13. METHOTREXATE [Suspect]
     Active Substance: METHOTREXATE
     Dosage: (DOSAGE FORM: TABLET) FIRST HIGH DOSE (HD) OF METHOTREXATE 10600 MILLIGRAM, 2 DAYS
     Route: 048
     Dates: start: 20220301
  14. METHOTREXATE [Suspect]
     Active Substance: METHOTREXATE
     Dosage: LAST DOSE OF HD METHOTREXATE PRIOR TO THE SAE WAS TAKEN
     Route: 048
     Dates: start: 20220412
  15. METHOTREXATE [Suspect]
     Active Substance: METHOTREXATE
     Dosage: (DOSAGE FORM: TABLET) FIRST DOSE OF ORAL METHOTREXATE 43.75 MG 1X WEEK
     Route: 048
     Dates: start: 20221109, end: 20221130
  16. METHOTREXATE [Suspect]
     Active Substance: METHOTREXATE
     Dosage: LAST DOSE OF ORAL METHOTREXATE PRIOR TO THE SAE WAS TAKEN
     Route: 048
     Dates: start: 20221123
  17. PEGASPARGASE [Suspect]
     Active Substance: PEGASPARGASE
     Indication: Acute lymphocytic leukaemia
     Dosage: 5125 IU, ONCE
     Route: 042
     Dates: start: 20220103
  18. PEGASPARGASE [Suspect]
     Active Substance: PEGASPARGASE
     Dosage: LAST DOSE PRIOR TO THE SAE
     Route: 042
     Dates: start: 20220103, end: 20220103
  19. LEUCOVORIN [Suspect]
     Active Substance: LEUCOVORIN
     Indication: Acute lymphocytic leukaemia
     Dosage: (FIRST DOSE) 32 MILLIGRAM 2-4 DAYS
     Route: 048
     Dates: start: 20220303
  20. LEUCOVORIN [Suspect]
     Active Substance: LEUCOVORIN
     Dosage: LAST DOSE PRIOR TO THE SAE
     Route: 048
     Dates: start: 20220415, end: 20220415
  21. DEXAMETHASONE [Suspect]
     Active Substance: DEXAMETHASONE
     Indication: Acute lymphocytic leukaemia
     Dosage: (FIRST DOSE) 10.75 MILLIGRAM, BID
     Route: 048
     Dates: start: 20220504
  22. DEXAMETHASONE [Suspect]
     Active Substance: DEXAMETHASONE
     Dosage: LAST DOSE PRIOR TO THE SAE
     Route: 048
     Dates: start: 20220520, end: 20220520
  23. ASPARAGINASE [Suspect]
     Active Substance: ASPARAGINASE
     Indication: Acute lymphocytic leukaemia
     Dosage: (FIRST DOSE) 108 MG, ONCE 2 DAYS
     Route: 042
     Dates: start: 20220131
  24. ASPARAGINASE [Suspect]
     Active Substance: ASPARAGINASE
     Dosage: LAST DOSE PRIOR TO THE SAE
     Route: 042
     Dates: start: 20220926, end: 20220926
  25. PREDNISONE [Suspect]
     Active Substance: PREDNISONE
     Indication: Acute lymphocytic leukaemia
     Dosage: (FIRST DOSE) 42.5 MG, BID
     Route: 048
     Dates: start: 20221102
  26. PREDNISONE [Suspect]
     Active Substance: PREDNISONE
     Dosage: LAST DOSE PRIOR TO THE SAE
     Route: 048
     Dates: start: 20221102, end: 20221102
  27. ACETAMINOPHEN [Concomitant]
     Active Substance: ACETAMINOPHEN
     Indication: Product used for unknown indication
     Dosage: UNK
     Route: 065
     Dates: start: 20221127
  28. CEFEPIME [Concomitant]
     Active Substance: CEFEPIME HYDROCHLORIDE
     Indication: Product used for unknown indication
     Dosage: UNK
     Route: 065
     Dates: start: 20221127

REACTIONS (1)
  - Febrile neutropenia [Recovered/Resolved]

NARRATIVE: CASE EVENT DATE: 20221128
